FAERS Safety Report 8415250-7 (Version None)
Quarter: 2012Q2

REPORT INFORMATION
  Report Type: 
  Country: None (occurrence: None)
  Receive Date: 20120606
  Receipt Date: 20120524
  Transmission Date: 20120825
  Serious: Yes (Other)
  Sender: FDA-Public Use
  Company Number: ES-VERTEX PHARMACEUTICALS INC.-000000000000000791

PATIENT
  Sex: Male

DRUGS (6)
  1. RIBAVIRIN [Concomitant]
     Indication: HEPATITIS C
     Dates: start: 20120509, end: 20120522
  2. INTERFERON ALFA-2B [Concomitant]
     Indication: HEPATITIS C
     Dosage: DOSAGE FORM: UNSPECIFIED
     Route: 065
     Dates: start: 20120509, end: 20120522
  3. FENOFIBRATE [Concomitant]
     Indication: DYSLIPIDAEMIA
  4. INCIVO [Suspect]
     Indication: HEPATITIS C
     Dosage: DOSAGE FORM: TABLET
     Route: 048
     Dates: start: 20120509, end: 20120522
  5. METFORMIN HCL [Concomitant]
     Indication: DIABETES MELLITUS
  6. AMARYL [Concomitant]
     Indication: DIABETES MELLITUS

REACTIONS (2)
  - VASCULITIS [None]
  - RASH [None]
